FAERS Safety Report 10428386 (Version 1)
Quarter: 2014Q3

REPORT INFORMATION
  Report Type: Spontaneous
  Country: US (occurrence: US)
  Receive Date: 20140903
  Receipt Date: 20140903
  Transmission Date: 20150326
  Serious: Yes (Hospitalization)
  Sender: FDA-Public Use
  Company Number: US-GLAXOSMITHKLINE-A1087263A

PATIENT
  Age: 77 Year
  Sex: Female

DRUGS (21)
  1. LYRICA [Concomitant]
     Active Substance: PREGABALIN
  2. FUROSEMIDE. [Concomitant]
     Active Substance: FUROSEMIDE
  3. PRIMIDONE. [Concomitant]
     Active Substance: PRIMIDONE
  4. METHOTREXATE [Concomitant]
     Active Substance: METHOTREXATE
  5. FOLIC ACID. [Concomitant]
     Active Substance: FOLIC ACID
  6. VITAMIN B12 [Concomitant]
     Active Substance: CYANOCOBALAMIN
  7. CITALOPRAM [Concomitant]
     Active Substance: CITALOPRAM HYDROBROMIDE
  8. OMEPRAZOLE. [Concomitant]
     Active Substance: OMEPRAZOLE
  9. NORVASC [Concomitant]
     Active Substance: AMLODIPINE BESYLATE
  10. BABY ASPIRIN [Concomitant]
     Active Substance: ASPIRIN
  11. PROAIR HFA [Concomitant]
     Active Substance: ALBUTEROL SULFATE
  12. ADVAIR HFA [Suspect]
     Active Substance: FLUTICASONE PROPIONATE\SALMETEROL XINAFOATE
     Indication: ASTHMA
     Dosage: 2PUFF TWICE PER DAY
     Route: 055
  13. VITAMIN C [Concomitant]
     Active Substance: ASCORBIC ACID
  14. LORATADINE. [Concomitant]
     Active Substance: LORATADINE
  15. GABAPENTIN. [Concomitant]
     Active Substance: GABAPENTIN
  16. ATENOLOL. [Concomitant]
     Active Substance: ATENOLOL
  17. FLUTICASONE [Concomitant]
     Active Substance: FLUTICASONE\FLUTICASONE PROPIONATE
  18. PROBIOTICS [Concomitant]
     Active Substance: PROBIOTICS NOS
  19. CALCIUM + VITAMIN D [Concomitant]
     Active Substance: CALCIUM\VITAMIN D
  20. SIMVASTATIN. [Concomitant]
     Active Substance: SIMVASTATIN
  21. FISH OIL [Concomitant]
     Active Substance: FISH OIL

REACTIONS (3)
  - Staphylococcal infection [Recovered/Resolved]
  - Pneumonia [Recovered/Resolved]
  - Malaise [Recovered/Resolved]

NARRATIVE: CASE EVENT DATE: 2014
